FAERS Safety Report 21009265 (Version 1)
Quarter: 2022Q2

REPORT INFORMATION
  Report Type: Spontaneous
  Country: US (occurrence: None)
  Receive Date: 20220624
  Receipt Date: 20220624
  Transmission Date: 20220721
  Serious: Yes (Death, Life-Threatening, Hospitalization)
  Sender: FDA-Public Use
  Company Number: None

PATIENT
  Age: 68 Year
  Sex: Female
  Weight: 86.4 kg

DRUGS (1)
  1. MIRCERA [Suspect]
     Active Substance: METHOXY POLYETHYLENE GLYCOL-EPOETIN BETA
     Indication: Anaemia
     Dosage: OTHER FREQUENCY : ONCE;?
     Route: 042
     Dates: start: 20220617, end: 20220617

REACTIONS (2)
  - Unresponsive to stimuli [None]
  - Dialysis [None]

NARRATIVE: CASE EVENT DATE: 20220617
